FAERS Safety Report 20590006 (Version 1)
Quarter: 2022Q1

REPORT INFORMATION
  Report Type: Spontaneous
  Country: US (occurrence: US)
  Receive Date: 20220314
  Receipt Date: 20220314
  Transmission Date: 20220423
  Serious: No
  Sender: FDA-Public Use
  Company Number: US-GW PHARMA-202203USGW01227

PATIENT
  Sex: Male

DRUGS (1)
  1. EPIDIOLEX [Suspect]
     Active Substance: CANNABIDIOL
     Indication: Autism spectrum disorder
     Dosage: 1400 MILLIGRAM
     Route: 048
     Dates: start: 20210525

REACTIONS (3)
  - Gastroenteritis viral [Unknown]
  - Diarrhoea [Unknown]
  - Product use in unapproved indication [Unknown]
